FAERS Safety Report 5223797-X (Version None)
Quarter: 2007Q1

REPORT INFORMATION
  Report Type: 
  Country: None (occurrence: None)
  Receive Date: 20070130
  Receipt Date: 20070117
  Transmission Date: 20070707
  Serious: Yes (Hospitalization)
  Sender: FDA-Public Use
  Company Number: FR-BAYER-200610866BFR

PATIENT
  Age: 66 Year
  Sex: Male

DRUGS (4)
  1. SORAFENIB [Suspect]
     Indication: HEPATIC NEOPLASM MALIGNANT
     Dosage: TOTAL DAILY DOSE: 800 MG  UNIT DOSE: 200 MG
     Route: 048
     Dates: start: 20060216, end: 20060809
  2. BISOPROLOL FUMARATE [Concomitant]
     Indication: HYPERTENSION
     Route: 048
     Dates: start: 20050801
  3. CHRONADALATE [Concomitant]
     Indication: HYPERTENSION
     Route: 048
     Dates: start: 20050801
  4. PERMIXON [Concomitant]
     Indication: ANXIETY
     Route: 048
     Dates: start: 20051001

REACTIONS (1)
  - CHOLECYSTOCHOLANGITIS [None]
